FAERS Safety Report 8037477-9 (Version None)
Quarter: 2012Q1

REPORT INFORMATION
  Report Type: 
  Country: None (occurrence: None)
  Receive Date: 20120111
  Receipt Date: 20120109
  Transmission Date: 20120608
  Serious: Yes (Other)
  Sender: FDA-Public Use
  Company Number: US-PFIZER INC-2012004491

PATIENT
  Sex: Female

DRUGS (2)
  1. CHANTIX [Suspect]
     Dosage: 1 MG, UNK
     Route: 048
  2. CHANTIX [Suspect]
     Dosage: UNK
     Route: 048
     Dates: start: 20111226

REACTIONS (6)
  - SELF INJURIOUS BEHAVIOUR [None]
  - DEPRESSION [None]
  - APHAGIA [None]
  - SOMNOLENCE [None]
  - MALAISE [None]
  - NAUSEA [None]
